FAERS Safety Report 9842078 (Version 2)
Quarter: 2014Q2

REPORT INFORMATION
  Report Type: Spontaneous
  Country: PT (occurrence: PT)
  Receive Date: 20140124
  Receipt Date: 20140411
  Transmission Date: 20141212
  Serious: Yes (Hospitalization)
  Sender: FDA-Public Use
  Company Number: PT-BRISTOL-MYERS SQUIBB COMPANY-20056578

PATIENT
  Age: 76 Year
  Sex: Male

DRUGS (9)
  1. REYATAZ [Suspect]
     Indication: HIV INFECTION
     Route: 048
     Dates: start: 20080801, end: 20131108
  2. ENTECAVIR [Suspect]
     Dates: start: 201311
  3. NORVIR [Suspect]
     Dates: start: 20080801, end: 20131108
  4. TRUVADA [Suspect]
     Dates: start: 2006, end: 20111230
  5. KIVEXA [Suspect]
     Dates: start: 20111230
  6. LISINOPRIL [Concomitant]
     Dates: start: 20061222, end: 20080104
  7. PRAVACOL [Concomitant]
     Dates: start: 20080912, end: 2011
  8. ADALAT-CR [Concomitant]
     Dosage: 1DF=30-UNITS NOS
     Dates: start: 20080104, end: 201311
  9. ESOMEPRAZOLE [Concomitant]
     Dates: start: 20100115, end: 201311

REACTIONS (2)
  - Lipodystrophy acquired [Recovering/Resolving]
  - Decreased appetite [Recovering/Resolving]
